FAERS Safety Report 25226282 (Version 1)
Quarter: 2025Q2

REPORT INFORMATION
  Report Type: Spontaneous
  Country: CH (occurrence: CH)
  Receive Date: 20250422
  Receipt Date: 20250422
  Transmission Date: 20250717
  Serious: Yes (Hospitalization, Other)
  Sender: BAYER HEALTHCARE PHARMACEUTICALS INC.
  Company Number: CH-BAYER-2025A048412

PATIENT
  Age: 36 Year
  Sex: Female

DRUGS (3)
  1. MIRENA [Suspect]
     Active Substance: LEVONORGESTREL
     Indication: Adenomyosis
     Dosage: 20?G/DAY
     Route: 015
     Dates: start: 20250228
  2. MIRENA [Suspect]
     Active Substance: LEVONORGESTREL
     Indication: Heavy menstrual bleeding
  3. VENLAFAXINE [Concomitant]
     Active Substance: VENLAFAXINE HYDROCHLORIDE
     Indication: Depression
     Dates: start: 20231101

REACTIONS (7)
  - Acute abdomen [None]
  - Intra-abdominal haemorrhage [None]
  - Haemorrhagic ovarian cyst [None]
  - Abdominal pain lower [Recovering/Resolving]
  - Back pain [None]
  - Pain in extremity [None]
  - Groin pain [None]

NARRATIVE: CASE EVENT DATE: 20250228
